FAERS Safety Report 10058342 (Version 1)
Quarter: 2014Q2

REPORT INFORMATION
  Report Type: Spontaneous
  Country: US (occurrence: None)
  Receive Date: 20140403
  Receipt Date: 20140403
  Transmission Date: 20141212
  Serious: Yes (Other)
  Sender: FDA-Public Use
  Company Number: None

PATIENT
  Age: 33 Year
  Sex: Female
  Weight: 52.16 kg

DRUGS (2)
  1. CIPROFLOXACIN [Suspect]
     Indication: URINARY TRACT INFECTION
     Dosage: 250 MG 1 PILL EVERY 12 HOURS BY MOUTH
     Route: 048
     Dates: start: 20140311, end: 20140312
  2. ADDERALL [Concomitant]

REACTIONS (11)
  - Headache [None]
  - Pyrexia [None]
  - Chills [None]
  - Erythema [None]
  - Swelling [None]
  - Pain [None]
  - Swelling face [None]
  - Ocular hyperaemia [None]
  - Paraesthesia [None]
  - Bone pain [None]
  - Myalgia [None]
